FAERS Safety Report 16984478 (Version 1)
Quarter: 2019Q4

REPORT INFORMATION
  Report Type: Spontaneous
  Country: US (occurrence: US)
  Receive Date: 20191101
  Receipt Date: 20191101
  Transmission Date: 20200122
  Serious: No
  Sender: FDA-Public Use
  Company Number: US-FARMAPROD-201907-1096

PATIENT
  Sex: Female

DRUGS (5)
  1. MOXIFLOXACIN. [Concomitant]
     Active Substance: MOXIFLOXACIN
  2. OXERVATE [Suspect]
     Active Substance: CENEGERMIN-BKBJ
     Indication: HYPOAESTHESIA EYE
  3. OXERVATE [Suspect]
     Active Substance: CENEGERMIN-BKBJ
     Indication: NEUROTROPHIC KERATOPATHY
  4. OXERVATE [Suspect]
     Active Substance: CENEGERMIN-BKBJ
     Indication: OPHTHALMIC HERPES ZOSTER
     Route: 047
     Dates: start: 20190625
  5. LACRI-LUBE [Concomitant]

REACTIONS (6)
  - Sinus pain [Recovering/Resolving]
  - Headache [Recovering/Resolving]
  - Facial pain [Recovering/Resolving]
  - Product quality issue [Unknown]
  - Photophobia [Recovering/Resolving]
  - Eye pain [Recovering/Resolving]
